FAERS Safety Report 15698921 (Version 1)
Quarter: 2018Q4

REPORT INFORMATION
  Report Type: Spontaneous
  Country: US (occurrence: US)
  Receive Date: 20181207
  Receipt Date: 20181207
  Transmission Date: 20190205
  Serious: No
  Sender: FDA-Public Use
  Company Number: US-PFIZER INC-2018500499

PATIENT
  Age: 13 Year
  Sex: Male

DRUGS (1)
  1. GENOTROPIN [Suspect]
     Active Substance: SOMATROPIN
     Dosage: 1 MG, DAILY
     Dates: start: 20091005

REACTIONS (8)
  - Blood cholesterol decreased [Unknown]
  - Blood potassium increased [Unknown]
  - Blood creatine decreased [Unknown]
  - Blood urea nitrogen/creatinine ratio increased [Unknown]
  - Blood cholesterol abnormal [Unknown]
  - High density lipoprotein decreased [Unknown]
  - Insulin-like growth factor increased [Unknown]
  - Blood triglycerides increased [Unknown]
